FAERS Safety Report 21763509 (Version 1)
Quarter: 2022Q4

REPORT INFORMATION
  Report Type: Report from Study
  Country: US (occurrence: US)
  Receive Date: 20221221
  Receipt Date: 20221221
  Transmission Date: 20230112
  Serious: No
  Sender: FDA-Public Use
  Company Number: US-ABBVIE-4199215

PATIENT
  Age: 62 Year
  Sex: Female

DRUGS (4)
  1. RINVOQ [Suspect]
     Active Substance: UPADACITINIB
     Indication: Psoriasis
     Route: 048
     Dates: start: 20220727
  2. COVID-19 [Concomitant]
     Indication: COVID-19 immunisation
     Dosage: DOSE 1
     Route: 030
  3. COVID-19 [Concomitant]
     Indication: COVID-19 immunisation
     Dosage: DOSE 2
     Route: 030
  4. COVID-19 [Concomitant]
     Indication: COVID-19 immunisation
     Dosage: DOSE 3
     Route: 030

REACTIONS (1)
  - Tympanic membrane perforation [Recovering/Resolving]

NARRATIVE: CASE EVENT DATE: 20221007
